FAERS Safety Report 8568805-3 (Version None)
Quarter: 2012Q3

REPORT INFORMATION
  Report Type: 
  Country: None (occurrence: None)
  Receive Date: 20120803
  Receipt Date: 20120315
  Transmission Date: 20120928
  Serious: No
  Sender: FDA-Public Use
  Company Number: US-ABBOTT-12P-163-0915577-00

PATIENT
  Sex: Male
  Weight: 88.53 kg

DRUGS (1)
  1. NIASPAN [Suspect]
     Indication: BLOOD CHOLESTEROL ABNORMAL
     Dosage: THOUGHT DOSE WAS 500 MG, BUT NOT CERTAIN
     Dates: start: 20120309, end: 20120312

REACTIONS (1)
  - NAUSEA [None]
